FAERS Safety Report 25411935 (Version 1)
Quarter: 2025Q2

REPORT INFORMATION
  Report Type: Spontaneous
  Country: US (occurrence: US)
  Receive Date: 20250609
  Receipt Date: 20250609
  Transmission Date: 20250717
  Serious: Yes (Life-Threatening, Hospitalization, Other)
  Sender: RANBAXY
  Company Number: US-SUN PHARMACEUTICAL INDUSTRIES INC-2025R1-510562

PATIENT
  Age: 17 Year
  Sex: Male

DRUGS (4)
  1. AMIODARONE [Suspect]
     Active Substance: AMIODARONE
     Indication: Friedreich^s ataxia
     Dosage: 200 MILLIGRAM, DAILY
     Route: 065
  2. METOPROLOL [Suspect]
     Active Substance: METOPROLOL
     Indication: Friedreich^s ataxia
     Dosage: 50 MILLIGRAM, BID
     Route: 065
  3. DOFETILIDE [Suspect]
     Active Substance: DOFETILIDE
     Indication: Friedreich^s ataxia
     Dosage: 500 MICROGRAM, BID
     Route: 065
  4. OMAVELOXOLONE [Suspect]
     Active Substance: OMAVELOXOLONE
     Indication: Friedreich^s ataxia
     Route: 065

REACTIONS (6)
  - Hyperthyroidism [Unknown]
  - Cardiogenic shock [Unknown]
  - Acute left ventricular failure [Unknown]
  - Disease recurrence [Unknown]
  - Ventricular tachycardia [Unknown]
  - Acute kidney injury [Unknown]
